FAERS Safety Report 9087928 (Version 1)
Quarter: 2013Q1

REPORT INFORMATION
  Report Type: Spontaneous
  Country: US (occurrence: US)
  Receive Date: 20130130
  Receipt Date: 20130130
  Transmission Date: 20140127
  Serious: No
  Sender: FDA-Public Use
  Company Number: US-ABBOTT-12P-163-0980067-00

PATIENT
  Age: 59 Year
  Sex: Male

DRUGS (1)
  1. HUMIRA [Suspect]
     Indication: PSORIASIS
     Route: 058
     Dates: start: 201106, end: 20110811

REACTIONS (4)
  - Drug ineffective [Not Recovered/Not Resolved]
  - Rash pustular [Unknown]
  - Rash pustular [Unknown]
  - Rash pustular [Unknown]
